FAERS Safety Report 4870941-X (Version None)
Quarter: 2005Q4

REPORT INFORMATION
  Report Type: 
  Country: None (occurrence: None)
  Receive Date: 20051228
  Receipt Date: 20051213
  Transmission Date: 20060501
  Serious: No
  Sender: FDA-Public Use
  Company Number: 2005-134855-NL

PATIENT
  Age: 32 Year
  Sex: Female

DRUGS (1)
  1. NUVARING [Suspect]
     Indication: CONTRACEPTION
     Dosage: DF, VAGINAL
     Route: 067
     Dates: start: 20050801, end: 20051101

REACTIONS (1)
  - VISUAL ACUITY REDUCED [None]
